FAERS Safety Report 9189443 (Version 2)
Quarter: 2014Q1

REPORT INFORMATION
  Report Type: Spontaneous
  Country: US (occurrence: None)
  Receive Date: 20120703
  Receipt Date: 20130107
  Transmission Date: 20141002
  Serious: No
  Sender: FDA-Public Use
  Company Number: PHEH2012US004717

PATIENT
  Age: 41 Year
  Sex: Female

DRUGS (2)
  1. GILENYA [Suspect]
     Indication: RELAPSING-REMITTING MULTIPLE SCLEROSIS
     Route: 048
     Dates: start: 20110126
  2. SAPHRIS (ASENAPINE) [Concomitant]

REACTIONS (4)
  - Muscular weakness [None]
  - Asthenia [None]
  - Fungal infection [None]
  - Sinusitis [None]
